FAERS Safety Report 7754712-2 (Version None)
Quarter: 2011Q3

REPORT INFORMATION
  Report Type: 
  Country: None (occurrence: None)
  Receive Date: 20110915
  Receipt Date: 20110705
  Transmission Date: 20111222
  Serious: Yes (Other)
  Sender: FDA-Public Use
  Company Number: PHHY2011NL56487

PATIENT
  Sex: Male

DRUGS (3)
  1. SPIRIVA [Concomitant]
     Dosage: 1 DD 18 MCG
     Dates: start: 20110523
  2. ONBREZ [Suspect]
     Dosage: 150 UG, QD
     Dates: start: 20110606, end: 20110629
  3. OMEPRAZOLE [Concomitant]
     Dosage: 1 DD 20 MG

REACTIONS (2)
  - OEDEMA PERIPHERAL [None]
  - PULMONARY OEDEMA [None]
